FAERS Safety Report 8512535-0 (Version None)
Quarter: 2012Q3

REPORT INFORMATION
  Report Type: 
  Country: None (occurrence: None)
  Receive Date: 20120716
  Receipt Date: 20120710
  Transmission Date: 20120928
  Serious: Yes (Hospitalization)
  Sender: FDA-Public Use
  Company Number: DE-GLAXOSMITHKLINE-D0076280A

PATIENT
  Age: 20 Year
  Sex: Female

DRUGS (1)
  1. MALARONE [Suspect]
     Indication: MALARIA PROPHYLAXIS
     Route: 048
     Dates: start: 20120301, end: 20120301

REACTIONS (4)
  - SLEEP DISORDER [None]
  - PSYCHOTIC DISORDER [None]
  - MALARIA [None]
  - AGGRESSION [None]
